FAERS Safety Report 6096246-X (Version None)
Quarter: 2009Q1

REPORT INFORMATION
  Report Type: 
  Country: None (occurrence: None)
  Receive Date: 20090227
  Receipt Date: 20081029
  Transmission Date: 20090719
  Serious: No
  Sender: FDA-Public Use
  Company Number: A0752394A

PATIENT
  Age: 23 Year
  Sex: Male

DRUGS (6)
  1. LAMICTAL [Suspect]
     Indication: BIPOLAR DISORDER
     Dosage: 100MG PER DAY
     Route: 048
     Dates: start: 20080801, end: 20081015
  2. LEVITRA [Concomitant]
  3. VIAGRA [Concomitant]
  4. KLONOPIN [Concomitant]
  5. INVEGA [Concomitant]
  6. XANAX [Concomitant]

REACTIONS (1)
  - ERECTILE DYSFUNCTION [None]
